FAERS Safety Report 17020519 (Version 1)
Quarter: 2019Q4

REPORT INFORMATION
  Report Type: Spontaneous
  Country: ES (occurrence: ES)
  Receive Date: 20191112
  Receipt Date: 20191112
  Transmission Date: 20200122
  Serious: Yes (Other)
  Sender: FDA-Public Use
  Company Number: ES-GLAXOSMITHKLINE-ES2019204430

PATIENT
  Age: 79 Year
  Sex: Male
  Weight: 73 kg

DRUGS (1)
  1. NUCALA [Suspect]
     Active Substance: MEPOLIZUMAB
     Indication: ASTHMA
     Dosage: UNK
     Route: 030
     Dates: start: 20190117, end: 20190920

REACTIONS (4)
  - Tremor [Recovering/Resolving]
  - Asthenia [Recovering/Resolving]
  - Weight decreased [Recovering/Resolving]
  - Muscle atrophy [Recovering/Resolving]

NARRATIVE: CASE EVENT DATE: 20190701
